FAERS Safety Report 25750395 (Version 2)
Quarter: 2025Q3

REPORT INFORMATION
  Report Type: Spontaneous
  Country: US (occurrence: US)
  Receive Date: 20250902
  Receipt Date: 20250903
  Transmission Date: 20251021
  Serious: Yes (Hospitalization)
  Sender: PFIZER
  Company Number: US-PFIZER INC-202500169782

PATIENT
  Age: 83 Year
  Sex: Female

DRUGS (9)
  1. PEGFILGRASTIM [Suspect]
     Active Substance: PEGFILGRASTIM
     Indication: Lung adenocarcinoma
  2. PEGFILGRASTIM [Suspect]
     Active Substance: PEGFILGRASTIM
     Indication: Sarcomatoid carcinoma of the lung
  3. PEMETREXED TROMETHAMINE [Suspect]
     Active Substance: PEMETREXED TROMETHAMINE
     Indication: Lung adenocarcinoma
  4. PEMETREXED TROMETHAMINE [Suspect]
     Active Substance: PEMETREXED TROMETHAMINE
     Indication: Sarcomatoid carcinoma of the lung
  5. CARBOPLATIN [Suspect]
     Active Substance: CARBOPLATIN
     Indication: Lung adenocarcinoma
  6. CARBOPLATIN [Suspect]
     Active Substance: CARBOPLATIN
     Indication: Sarcomatoid carcinoma of the lung
  7. PEMBROLIZUMAB [Suspect]
     Active Substance: PEMBROLIZUMAB
     Indication: Lung adenocarcinoma
  8. PEMBROLIZUMAB [Suspect]
     Active Substance: PEMBROLIZUMAB
     Indication: Sarcomatoid carcinoma of the lung
  9. CEFTRIAXONE [Suspect]
     Active Substance: CEFTRIAXONE
     Indication: Urinary tract infection

REACTIONS (2)
  - Staphylococcal infection [Recovered/Resolved]
  - Large intestine infection [Recovered/Resolved]
